FAERS Safety Report 12310023 (Version 1)
Quarter: 2016Q2

REPORT INFORMATION
  Report Type: Spontaneous
  Country: US (occurrence: None)
  Receive Date: 20160426
  Receipt Date: 20160426
  Transmission Date: 20160815
  Serious: Yes (Life-Threatening, Hospitalization, Disabling)
  Sender: FDA-Public Use
  Company Number: None

PATIENT
  Age: 31 Year
  Sex: Female
  Weight: 64.41 kg

DRUGS (6)
  1. CHEWABLE GUMMY WOMEN^S COMPLETE DAILY MULTI-VITAMIN [Concomitant]
  2. SEROQUEL [Concomitant]
     Active Substance: QUETIAPINE FUMARATE
  3. NEROTIN (GABAPENTIN) [Concomitant]
  4. WELLBUTRIN (BUPROPION SR) [Concomitant]
  5. ZENZEDI [Concomitant]
     Active Substance: DEXTROAMPHETAMINE SULFATE
  6. QUETIAPINE. [Suspect]
     Active Substance: QUETIAPINE
     Indication: INSOMNIA
     Dosage: 60 TABLETS AT BEDTIME
     Route: 048

REACTIONS (16)
  - Insomnia [None]
  - Impaired work ability [None]
  - Hypersomnia [None]
  - Off label use [None]
  - Condition aggravated [None]
  - Memory impairment [None]
  - Drug effect decreased [None]
  - Suicidal ideation [None]
  - Weight increased [None]
  - Drug dependence [None]
  - Depression [None]
  - Seizure [None]
  - Feeling abnormal [None]
  - Middle insomnia [None]
  - Attention deficit/hyperactivity disorder [None]
  - Drug effect variable [None]

NARRATIVE: CASE EVENT DATE: 20081122
